APPROVED DRUG PRODUCT: EZETIMIBE
Active Ingredient: EZETIMIBE
Strength: 10MG
Dosage Form/Route: TABLET;ORAL
Application: A078560 | Product #001 | TE Code: AB
Applicant: GLENMARK PHARMACEUTICALS LTD
Approved: Jun 26, 2015 | RLD: No | RS: No | Type: RX